FAERS Safety Report 5055988-5 (Version None)
Quarter: 2006Q3

REPORT INFORMATION
  Report Type: 
  Country: None (occurrence: None)
  Receive Date: 20060720
  Receipt Date: 20060711
  Transmission Date: 20061208
  Serious: Yes (Life-Threatening, Congenital Anomaly)
  Sender: FDA-Public Use
  Company Number: FR-JNJFOC-20060702230

PATIENT

DRUGS (1)
  1. EPITOMAX [Suspect]
     Indication: EPILEPSY

REACTIONS (3)
  - ABORTION INDUCED [None]
  - CLEFT LIP [None]
  - DRUG EXPOSURE DURING PREGNANCY [None]
